FAERS Safety Report 15212203 (Version 1)
Quarter: 2018Q3

REPORT INFORMATION
  Report Type: Report from Study
  Country: BR (occurrence: BR)
  Receive Date: 20180730
  Receipt Date: 20180730
  Transmission Date: 20181010
  Serious: Yes (Hospitalization, Other)
  Sender: FDA-Public Use
  Company Number: BR-UCBSA-2016033458

PATIENT
  Age: 65 Year
  Sex: Female
  Weight: 82 kg

DRUGS (13)
  1. NORTRIPTYLINE [Concomitant]
     Active Substance: NORTRIPTYLINE
     Indication: SLEEP DISORDER
     Dosage: 3 DF, ONCE DAILY (QD)
     Route: 048
     Dates: start: 1988
  2. GLUCOSAMINE + CHONDROITIN [Concomitant]
     Active Substance: CHONDROITIN SULFATE (BOVINE)\GLUCOSAMINE HYDROCHLORIDE
     Indication: CHONDROPATHY
     Dosage: (START DATE: 2005 OR 2006) (IN THE MORNING)
     Route: 048
  3. CERTOLIZUMAB PEGOL [Suspect]
     Active Substance: CERTOLIZUMAB PEGOL
     Dosage: 400 MG, MONTHLY (QM)
  4. DIACEREIN [Concomitant]
     Active Substance: DIACEREIN
     Indication: CHONDROPATHY
     Dosage: 1 DF, ONCE DAILY (QD) IN 2005 OR 2006
     Route: 048
  5. CERTOLIZUMAB PEGOL [Suspect]
     Active Substance: CERTOLIZUMAB PEGOL
     Indication: RHEUMATOID ARTHRITIS
     Dosage: 400 MG, WEEKLY (QW)
     Dates: start: 201510
  6. SERTRALINE HYDROCHLORIDE. [Concomitant]
     Active Substance: SERTRALINE HYDROCHLORIDE
     Indication: DEPRESSION
     Dosage: UNK
     Route: 048
  7. METFORMIN [Concomitant]
     Active Substance: METFORMIN HYDROCHLORIDE
     Indication: DIABETES MELLITUS
     Dosage: 1 DF, ONCE DAILY (QD)
     Route: 048
     Dates: start: 2014
  8. CALCIUM COMPLEX [Concomitant]
     Indication: BONE DISORDER
     Dosage: ONCE DAILY (QD), 2 CAPS/MORNING
     Route: 048
     Dates: start: 1980
  9. DIAZEPAM. [Concomitant]
     Active Substance: DIAZEPAM
     Indication: SLEEP DISORDER
     Dosage: 10 MG, ONCE DAILY (QD)
     Route: 048
     Dates: start: 1969
  10. VERTIX [Concomitant]
     Indication: DIZZINESS
     Dosage: UNK
     Route: 048
  11. OMEPRAZOLE. [Concomitant]
     Active Substance: OMEPRAZOLE
     Indication: PROPHYLAXIS
     Dosage: UNK UNK, 2X/DAY (BID)
     Route: 048
     Dates: start: 1995
  12. HYDROCHLOROTHIAZIDE. [Concomitant]
     Active Substance: HYDROCHLOROTHIAZIDE
     Indication: BLOOD PRESSURE MANAGEMENT
     Dosage: 1 DF, ONCE DAILY (QD)
     Route: 048
     Dates: start: 2014
  13. ENALAPRIL [Concomitant]
     Active Substance: ENALAPRIL
     Indication: BLOOD PRESSURE MANAGEMENT
     Dosage: 1 DF, ONCE DAILY (QD)
     Route: 048
     Dates: start: 2014

REACTIONS (7)
  - Adrenal disorder [Recovering/Resolving]
  - Fall [Recovered/Resolved]
  - Dizziness [Not Recovered/Not Resolved]
  - Dyspnoea [Not Recovered/Not Resolved]
  - Skin cancer [Unknown]
  - Intentional product misuse [Unknown]
  - Haemorrhage [Recovered/Resolved]

NARRATIVE: CASE EVENT DATE: 201510
